FAERS Safety Report 25806272 (Version 3)
Quarter: 2025Q4

REPORT INFORMATION
  Report Type: Spontaneous
  Country: US (occurrence: US)
  Receive Date: 20250916
  Receipt Date: 20251229
  Transmission Date: 20260117
  Serious: Yes (Other)
  Sender: SANOFI AVENTIS
  Company Number: US-SA-2025SA274796

PATIENT
  Age: 73 Year
  Sex: Male

DRUGS (1)
  1. DUPIXENT [Suspect]
     Active Substance: DUPILUMAB
     Indication: Chronic obstructive pulmonary disease
     Dosage: 300 MG, QOW
     Route: 058
     Dates: start: 20250522

REACTIONS (8)
  - Pericardial effusion [Unknown]
  - Atrial fibrillation [Recovered/Resolved]
  - Dizziness postural [Unknown]
  - Condition aggravated [Unknown]
  - Weight decreased [Unknown]
  - Dyspnoea [Unknown]
  - Respiratory tract infection [Unknown]
  - Cough [Unknown]

NARRATIVE: CASE EVENT DATE: 20250101
